FAERS Safety Report 16872198 (Version 1)
Quarter: 2019Q4

REPORT INFORMATION
  Report Type: Spontaneous
  Country: IL (occurrence: IL)
  Receive Date: 20191001
  Receipt Date: 20191001
  Transmission Date: 20200122
  Serious: Yes (Other)
  Sender: FDA-Public Use
  Company Number: IL-009507513-1909ISR014627

PATIENT
  Age: 63 Year
  Sex: Female
  Weight: 40 kg

DRUGS (1)
  1. KEYTRUDA [Suspect]
     Active Substance: PEMBROLIZUMAB
     Dosage: UNK
     Dates: start: 201711, end: 20180430

REACTIONS (2)
  - Hepatotoxicity [Unknown]
  - Hepatitis [Unknown]

NARRATIVE: CASE EVENT DATE: 2018
